FAERS Safety Report 13659589 (Version 1)
Quarter: 2017Q2

REPORT INFORMATION
  Report Type: Spontaneous
  Country: US (occurrence: US)
  Receive Date: 20170616
  Receipt Date: 20170616
  Transmission Date: 20170830
  Serious: Yes (Hospitalization)
  Sender: FDA-Public Use
  Company Number: None

PATIENT
  Age: 65 Year
  Sex: Female
  Weight: 111.3 kg

DRUGS (8)
  1. FAMOTIDINE. [Concomitant]
     Active Substance: FAMOTIDINE
  2. PAXIL [Concomitant]
     Active Substance: PAROXETINE HYDROCHLORIDE
  3. CYCLOSPORINE. [Concomitant]
     Active Substance: CYCLOSPORINE
  4. ONDANSETRON [Concomitant]
     Active Substance: ONDANSETRON
  5. FENTANYL/BUPIV IN NS 250ML [Suspect]
     Active Substance: BUPIVACAINE\FENTANYL
     Indication: PROCEDURAL PAIN
     Dosage: 5MCG/ML CONTINUOUS EPIDURAL?RECENT
     Route: 008
  6. DILTIAZEM. [Concomitant]
     Active Substance: DILTIAZEM
  7. SYMBICORT [Concomitant]
     Active Substance: BUDESONIDE\FORMOTEROL FUMARATE DIHYDRATE
  8. D5NS/KCL [Concomitant]

REACTIONS (3)
  - Hypercapnia [None]
  - Depressed level of consciousness [None]
  - Lethargy [None]

NARRATIVE: CASE EVENT DATE: 20170205
